FAERS Safety Report 6572198-0 (Version None)
Quarter: 2010Q1

REPORT INFORMATION
  Report Type: 
  Country: None (occurrence: None)
  Receive Date: 20100205
  Receipt Date: 20100126
  Transmission Date: 20100710
  Serious: Yes (Other)
  Sender: FDA-Public Use
  Company Number: PHHY2010US04919

PATIENT
  Age: 62 Year
  Sex: Male

DRUGS (1)
  1. PAMIDRONATE DISODIUM [Suspect]
     Indication: MULTIPLE MYELOMA
     Dosage: UNK

REACTIONS (10)
  - BONE DISORDER [None]
  - DIALYSIS [None]
  - OEDEMA [None]
  - OEDEMA MOUTH [None]
  - OSTEONECROSIS [None]
  - PAIN IN JAW [None]
  - PROTEINURIA [None]
  - RENAL FAILURE [None]
  - TOOTH EXTRACTION [None]
  - TRISMUS [None]
